FAERS Safety Report 18402638 (Version 1)
Quarter: 2020Q4

REPORT INFORMATION
  Report Type: Spontaneous
  Country: US (occurrence: US)
  Receive Date: 20201016
  Receipt Date: 20201016
  Transmission Date: 20210114
  Serious: No
  Sender: FDA-Public Use
  Company Number: None

PATIENT
  Age: 69 Year
  Sex: Female
  Weight: 56.7 kg

DRUGS (7)
  1. HUMIRA [Suspect]
     Active Substance: ADALIMUMAB
     Indication: CROHN^S DISEASE
     Dosage: QUANTITY:1 DF DOSAGE FORM;  1 SYRINGE??DATE STOPPED  02-OCT-2020
     Route: 058
     Dates: start: 201902
  2. TOPAMAX [Concomitant]
     Active Substance: TOPIRAMATE
  3. RALCI.. [Concomitant]
  4. CALCIUM [Concomitant]
     Active Substance: CALCIUM
  5. PRESERVISION [Concomitant]
     Active Substance: MINERALS\VITAMINS
  6. CENTRUM [Concomitant]
     Active Substance: VITAMINS
  7. ZEBETA [Concomitant]
     Active Substance: BISOPROLOL FUMARATE

REACTIONS (4)
  - Chills [None]
  - Rash [None]
  - Urticaria [None]
  - Therapy interrupted [None]

NARRATIVE: CASE EVENT DATE: 20201002
